FAERS Safety Report 5148832-9 (Version None)
Quarter: 2006Q4

REPORT INFORMATION
  Report Type: 
  Country: None (occurrence: None)
  Receive Date: 20061113
  Receipt Date: 20061031
  Transmission Date: 20070319
  Serious: Yes (Other)
  Sender: FDA-Public Use
  Company Number: PHBS2006US17242

PATIENT
  Age: 72 Year
  Sex: Female

DRUGS (16)
  1. CARBAMAZEPINE [Suspect]
     Indication: FACIAL PAIN
     Dosage: 200 MG/DAY
     Route: 065
  2. WARFARIN SODIUM [Suspect]
     Indication: PROPHYLAXIS
     Dosage: 30 MG/WEEK
     Route: 065
  3. SERTRALINE [Concomitant]
     Indication: DEPRESSION
     Dosage: 100 MG/DAY
     Route: 065
  4. SERTRALINE [Concomitant]
     Dosage: 200 MG/DAY
     Route: 065
  5. ATORVASTATIN CALCIUM [Concomitant]
     Indication: DYSLIPIDAEMIA
     Dosage: 40 MG/DAY
     Route: 065
  6. LORAZEPAM [Concomitant]
     Indication: ANXIETY
     Dosage: 0.5 MG, BID
     Route: 065
  7. ZOLPIDEM TARTRATE [Concomitant]
     Indication: SLEEP DISORDER
     Dosage: 5 MG/DAY
     Route: 065
  8. LOSARTAN POSTASSIUM [Concomitant]
     Indication: HYPERTENSION
     Dosage: 50 MG/DAY
     Route: 065
  9. DILTIAZEM HCL [Concomitant]
     Indication: ATRIAL FIBRILLATION
     Dosage: 180 MG/DAY
     Route: 065
  10. MONTELUKAST [Concomitant]
     Indication: ASTHMA
     Dosage: 10 MG/DAY
     Route: 065
  11. ALBUTEROL SULFATE AND IPRATROPIUM BROMIDE [Concomitant]
     Dosage: 2 PUFFS, QID
  12. MELOXICAM [Concomitant]
     Indication: ARTHRITIS
     Dosage: 15 MG/DAY
     Route: 065
  13. ACETAMINOPHEN AND CODEINE PHOSPHATE [Concomitant]
     Dosage: UNK, PRN
  14. ASPIRIN [Concomitant]
     Dosage: 81 MG/DAY
     Route: 065
  15. LANSOPRAZOLE [Concomitant]
     Dosage: 30 MG/DAY
     Route: 065
  16. FLUTICASONE PROPIONATE [Concomitant]

REACTIONS (3)
  - DRUG INTERACTION [None]
  - INTERNATIONAL NORMALISED RATIO DECREASED [None]
  - SURGERY [None]
